FAERS Safety Report 7745480-9 (Version None)
Quarter: 2011Q3

REPORT INFORMATION
  Report Type: 
  Country: None (occurrence: None)
  Receive Date: 20110829
  Receipt Date: 20110818
  Transmission Date: 20111222
  Serious: Yes (Death, Hospitalization)
  Sender: FDA-Public Use
  Company Number: 2011SP033952

PATIENT
  Age: 26 Year
  Sex: Female

DRUGS (2)
  1. DESOGESTREL/ETHINYL ESTRADIOL [Suspect]
     Indication: CONTRACEPTION
     Dates: start: 20090401
  2. DESOGESTREL AND ETHINYL ESTRADIOL [Suspect]
     Indication: CONTRACEPTION
     Dates: start: 20090401

REACTIONS (11)
  - BRAIN OEDEMA [None]
  - PRODUCT SUBSTITUTION ISSUE [None]
  - LOSS OF CONSCIOUSNESS [None]
  - PULMONARY EMBOLISM [None]
  - MALAISE [None]
  - PNEUMONIA KLEBSIELLA [None]
  - PNEUMONIA ASPIRATION [None]
  - BRAIN HYPOXIA [None]
  - CEREBRAL HAEMORRHAGE [None]
  - CORTICAL LAMINAR NECROSIS [None]
  - CARDIO-RESPIRATORY ARREST [None]
